FAERS Safety Report 4609745-1 (Version None)
Quarter: 2005Q1

REPORT INFORMATION
  Report Type: 
  Country: None (occurrence: None)
  Receive Date: 20050314
  Receipt Date: 20040712
  Transmission Date: 20050727
  Serious: No
  Sender: FDA-Public Use
  Company Number: 8462

PATIENT
  Age: 78 Year
  Sex: Male

DRUGS (3)
  1. ACYCLOVIR [Suspect]
     Indication: PROPHYLAXIS
     Dosage: 200 MG BID
  2. ASPIRIN [Concomitant]
  3. FUROSEMIDE [Concomitant]

REACTIONS (2)
  - BONE MARROW DEPRESSION [None]
  - NEUTROPENIA [None]
